FAERS Safety Report 5183511-3 (Version None)
Quarter: 2006Q4

REPORT INFORMATION
  Report Type: 
  Country: None (occurrence: None)
  Receive Date: 20061220
  Receipt Date: 20060116
  Transmission Date: 20070319
  Serious: No
  Sender: FDA-Public Use
  Company Number: US-GLAXOSMITHKLINE-A0589638A

PATIENT
  Age: 18 Year
  Sex: Female

DRUGS (1)
  1. NICODERM CQ [Suspect]
     Dates: start: 20060113

REACTIONS (6)
  - ABNORMAL DREAMS [None]
  - EARLY MORNING AWAKENING [None]
  - FATIGUE [None]
  - INSOMNIA [None]
  - POOR QUALITY SLEEP [None]
  - RESTLESSNESS [None]
